FAERS Safety Report 10069958 (Version 1)
Quarter: 2014Q2

REPORT INFORMATION
  Report Type: Spontaneous
  Country: AR (occurrence: None)
  Receive Date: 20140408
  Receipt Date: 20140408
  Transmission Date: 20141212
  Serious: Yes (Hospitalization)
  Sender: FDA-Public Use
  Company Number: 2014HINLIT0311

PATIENT
  Age: 44 Year
  Sex: Male

DRUGS (5)
  1. ABACAVIR [Suspect]
     Indication: HIV INFECTION
  2. TENOFOVIR [Suspect]
     Indication: HIV INFECTION
  3. DARUNAVIR/RITONAVIR [Suspect]
     Indication: HIV INFECTION
  4. IBUPIRAC MIGRA [Suspect]
     Indication: PRODUCT USED FOR UNKNOWN INDICATION
     Dosage: 3 TABLETS, 100MG/1MG/400MG
  5. IBUPIRAC MIGRA [Suspect]
     Indication: SELF-MEDICATION
     Dosage: 3 TABLETS, 100MG/1MG/400MG

REACTIONS (5)
  - Ergot poisoning [None]
  - Drug interaction [None]
  - Paraesthesia [None]
  - Pallor [None]
  - Pulse abnormal [None]
